FAERS Safety Report 21569847 (Version 2)
Quarter: 2022Q4

REPORT INFORMATION
  Report Type: Spontaneous
  Country: JO (occurrence: None)
  Receive Date: 20221109
  Receipt Date: 20221114
  Transmission Date: 20230113
  Serious: Yes (Other)
  Sender: FDA-Public Use
  Company Number: JO-ROCHE-3214380

PATIENT
  Age: 55 Year
  Sex: Male

DRUGS (2)
  1. BONVIVA [Suspect]
     Active Substance: IBANDRONATE SODIUM
     Indication: Product used for unknown indication
     Route: 065
  2. ARCOXIA [Concomitant]
     Active Substance: ETORICOXIB

REACTIONS (3)
  - Paralysis [Unknown]
  - Muscle spasms [Unknown]
  - Abdominal pain upper [Unknown]
